FAERS Safety Report 6599627-0 (Version None)
Quarter: 2010Q1

REPORT INFORMATION
  Report Type: 
  Country: None (occurrence: None)
  Receive Date: 20100216
  Receipt Date: 20100209
  Transmission Date: 20100710
  Serious: Yes (Hospitalization)
  Sender: FDA-Public Use
  Company Number: 2010SP007937

PATIENT
  Age: 58 Year
  Sex: Female
  Weight: 46.7 kg

DRUGS (8)
  1. PEG-INTRON [Suspect]
     Indication: HEPATITIS C
     Dosage: 0.7 ML;QD;SC ; 0.7 ML;QD;SC ; 0.7 ML;QD;SC
     Route: 058
     Dates: end: 20081028
  2. PEG-INTRON [Suspect]
     Indication: HEPATITIS C
     Dosage: 0.7 ML;QD;SC ; 0.7 ML;QD;SC ; 0.7 ML;QD;SC
     Route: 058
     Dates: end: 20100121
  3. PEG-INTRON [Suspect]
     Indication: HEPATITIS C
     Dosage: 0.7 ML;QD;SC ; 0.7 ML;QD;SC ; 0.7 ML;QD;SC
     Route: 058
     Dates: start: 20080828
  4. RIBAVIRIN [Suspect]
     Indication: HEPATITIS C
     Dosage: 500 MG;Q12H;PO ; 500 MG;Q12H;PO
     Route: 048
     Dates: end: 20100121
  5. RIBAVIRIN [Suspect]
     Indication: HEPATITIS C
     Dosage: 500 MG;Q12H;PO ; 500 MG;Q12H;PO
     Route: 048
     Dates: start: 20080828
  6. PROPRANOLOL [Concomitant]
  7. OMEPRAZOL             /00661201/ [Concomitant]
  8. EPREX [Concomitant]

REACTIONS (3)
  - DISEASE RECURRENCE [None]
  - H1N1 INFLUENZA [None]
  - PNEUMONIA BACTERIAL [None]
